FAERS Safety Report 5683037-4 (Version None)
Quarter: 2008Q1

REPORT INFORMATION
  Report Type: 
  Country: None (occurrence: None)
  Receive Date: 20080327
  Receipt Date: 20080317
  Transmission Date: 20080703
  Serious: Yes (Hospitalization)
  Sender: FDA-Public Use
  Company Number: GB-ABBOTT-08P-167-0443082-00

PATIENT
  Age: 56 Year
  Sex: Female

DRUGS (7)
  1. EPILIM [Suspect]
     Indication: EPILEPSY
     Route: 065
  2. INSULIN ASPART [Concomitant]
     Indication: TYPE 2 DIABETES MELLITUS
     Route: 065
  3. METFORMIN [Concomitant]
     Indication: TYPE 2 DIABETES MELLITUS
     Route: 065
  4. SIMVASTATIN [Concomitant]
     Indication: HYPERCHOLESTEROLAEMIA
     Route: 065
  5. DICLOFENAC SODIUM [Concomitant]
     Indication: ARTHRITIS
     Route: 065
  6. RIMONABANT [Concomitant]
     Indication: WEIGHT DECREASED
     Route: 048
     Dates: start: 20080220, end: 20080303
  7. RIMONABANT [Concomitant]
     Route: 048
     Dates: start: 20080305

REACTIONS (4)
  - ABNORMAL BEHAVIOUR [None]
  - DRUG INEFFECTIVE [None]
  - EPILEPSY [None]
  - GLOSSODYNIA [None]
